FAERS Safety Report 19834747 (Version 1)
Quarter: 2021Q3

REPORT INFORMATION
  Report Type: Other
  Country: US (occurrence: US)
  Receive Date: 20210915
  Receipt Date: 20210915
  Transmission Date: 20211014
  Serious: No
  Sender: FDA-Public Use
  Company Number: US-LEADIANT BIOSCIENCES INC-2020STPI000467

PATIENT
  Sex: Male

DRUGS (3)
  1. MATULANE [Suspect]
     Active Substance: PROCARBAZINE HYDROCHLORIDE
     Indication: BRAIN NEOPLASM
     Dosage: 50 MILLIGRAM, DAYS 8 TO 21 OF 42 DAY CYCLE
     Route: 048
     Dates: start: 20201017
  2. GLEOSTINE [Concomitant]
     Active Substance: LOMUSTINE
     Dosage: 10 MILLIGRAM
  3. VITAMIN C [Concomitant]
     Active Substance: ASCORBIC ACID
     Dosage: 1000 MILLIGRAM

REACTIONS (1)
  - Constipation [Recovering/Resolving]
